FAERS Safety Report 6474590-1 (Version None)
Quarter: 2009Q4

REPORT INFORMATION
  Report Type: 
  Country: None (occurrence: None)
  Receive Date: 20091204
  Receipt Date: 20090129
  Transmission Date: 20100525
  Serious: Yes (Other)
  Sender: FDA-Public Use
  Company Number: JP-ELI_LILLY_AND_COMPANY-JP200902000010

PATIENT
  Age: 61 Year
  Sex: Male
  Weight: 54 kg

DRUGS (9)
  1. GEMZAR [Suspect]
     Indication: PANCREATIC CARCINOMA
     Dosage: 1 G, DAILY (1/D)
     Route: 042
     Dates: start: 20071029, end: 20071029
  2. GEMZAR [Suspect]
     Dosage: 1 G, DAILY (1/D)
     Route: 042
     Dates: start: 20071115, end: 20071115
  3. GEMZAR [Suspect]
     Dosage: 1 G, DAILY (1/D)
     Route: 042
     Dates: start: 20071122, end: 20071122
  4. TS 1 [Concomitant]
     Indication: PANCREATIC CARCINOMA
     Dosage: 100 MG, DAILY (1/D)
     Route: 048
     Dates: start: 20071009, end: 20071029
  5. TS 1 [Concomitant]
     Dosage: 100 MG, DAILY (1/D)
     Route: 048
     Dates: start: 20071108, end: 20071121
  6. TS 1 [Concomitant]
     Dosage: 100 MG, DAILY (1/D)
     Route: 048
     Dates: start: 20071227, end: 20080116
  7. HEPARIN [Concomitant]
     Indication: TROUSSEAU'S SYNDROME
     Dosage: 10000 D/F, DAILY (1/D)
     Route: 042
     Dates: start: 20071013, end: 20071028
  8. EDARAVONE [Concomitant]
     Indication: TROUSSEAU'S SYNDROME
     Dosage: 30 MG, 2/D
     Route: 042
     Dates: start: 20071013, end: 20071020
  9. WARFARIN SODIUM [Concomitant]
     Indication: TROUSSEAU'S SYNDROME
     Dosage: 1 MG, DAILY (1/D)
     Route: 048
     Dates: start: 20071018

REACTIONS (3)
  - CEREBRAL INFARCTION [None]
  - INTERNATIONAL NORMALISED RATIO FLUCTUATION [None]
  - MALIGNANT NEOPLASM PROGRESSION [None]
